FAERS Safety Report 21763152 (Version 4)
Quarter: 2023Q1

REPORT INFORMATION
  Report Type: Report from Study
  Country: CN (occurrence: CN)
  Receive Date: 20221221
  Receipt Date: 20230221
  Transmission Date: 20230418
  Serious: Yes (Hospitalization)
  Sender: FDA-Public Use
  Company Number: CN-PFIZER INC-PV202200124104

PATIENT
  Age: 47 Year
  Sex: Female
  Weight: 50 kg

DRUGS (8)
  1. CYTARABINE [Suspect]
     Active Substance: CYTARABINE
     Indication: Acute myeloid leukaemia
     Dosage: 1550 MG, 1X/DAY, REGIMEN#1
     Route: 041
     Dates: start: 20221010, end: 20221014
  2. CYTARABINE [Suspect]
     Active Substance: CYTARABINE
     Dosage: 1550 MG, 1X/DAY, REGIMEN#2
     Route: 041
     Dates: start: 20221111, end: 20221115
  3. APG-115 [Suspect]
     Active Substance: APG-115
     Indication: Acute myeloid leukaemia
     Dosage: 150 MG, 1X/DAY, REGIMEN#1
     Route: 048
     Dates: start: 20221008, end: 20221014
  4. APG-115 [Suspect]
     Active Substance: APG-115
     Dosage: 150 MG, 1X/DAY, REGIMEN#2
     Route: 048
     Dates: start: 20221109, end: 20221115
  5. OPRELVEKIN [Concomitant]
     Active Substance: OPRELVEKIN
     Dosage: UNK
     Dates: start: 20221117
  6. GRANULOCYTE COLONY-STIMULATING FACTOR NOS [Concomitant]
     Active Substance: GRANULOCYTE COLONY-STIMULATING FACTOR NOS
     Dosage: UNK
     Dates: start: 20221117
  7. EACA [AMINOCAPROIC ACID] [Concomitant]
     Dosage: UNK
     Dates: start: 20221119
  8. VORICONAZOLE [Concomitant]
     Active Substance: VORICONAZOLE
     Dosage: UNK
     Dates: start: 20221120, end: 20221121

REACTIONS (1)
  - Febrile neutropenia [Recovered/Resolved]

NARRATIVE: CASE EVENT DATE: 20221122
